FAERS Safety Report 5319247-5 (Version None)
Quarter: 2007Q2

REPORT INFORMATION
  Report Type: 
  Country: None (occurrence: None)
  Receive Date: 20070508
  Receipt Date: 20070507
  Transmission Date: 20071010
  Serious: Yes (Other)
  Sender: FDA-Public Use
  Company Number: A0650057A

PATIENT
  Age: 43 Year
  Sex: Male

DRUGS (3)
  1. NICODERM CQ [Suspect]
     Indication: SMOKING CESSATION THERAPY
     Dosage: 21MG SEE DOSAGE TEXT
     Route: 062
  2. CLONIDINE [Concomitant]
  3. LISINOPRIL [Concomitant]

REACTIONS (4)
  - APPLICATION SITE BURN [None]
  - APPLICATION SITE REACTION [None]
  - DEPENDENCE [None]
  - INTENTIONAL DRUG MISUSE [None]
